FAERS Safety Report 15841936 (Version 1)
Quarter: 2019Q1

REPORT INFORMATION
  Report Type: Spontaneous
  Country: US (occurrence: US)
  Receive Date: 20190117
  Receipt Date: 20190117
  Transmission Date: 20190417
  Serious: Yes (Hospitalization, Disabling)
  Sender: FDA-Public Use
  Company Number: None

PATIENT
  Age: 19 Year
  Sex: Male
  Weight: 70.65 kg

DRUGS (2)
  1. OMEPRAZOL [Concomitant]
     Active Substance: OMEPRAZOLE
  2. LEVAQUIN [Suspect]
     Active Substance: LEVOFLOXACIN
     Indication: URINARY TRACT INFECTION
     Dosage: ?          QUANTITY:7 TABLET(S);?
     Route: 048
     Dates: start: 20181120, end: 20181127

REACTIONS (6)
  - Sexual dysfunction [None]
  - Neuropathy peripheral [None]
  - Sensory disturbance [None]
  - Dyspnoea [None]
  - Dysgeusia [None]
  - Tinnitus [None]

NARRATIVE: CASE EVENT DATE: 20181127
